FAERS Safety Report 6529969-6 (Version None)
Quarter: 2010Q1

REPORT INFORMATION
  Report Type: 
  Country: None (occurrence: None)
  Receive Date: 20100107
  Receipt Date: 20100104
  Transmission Date: 20100710
  Serious: Yes (Life-Threatening, Other)
  Sender: FDA-Public Use
  Company Number: FR-BRISTOL-MYERS SQUIBB COMPANY-14920961

PATIENT
  Age: 95 Year
  Sex: Male

DRUGS (5)
  1. COUMADIN [Suspect]
     Indication: PULMONARY EMBOLISM
     Route: 048
     Dates: start: 20090828, end: 20090922
  2. CALCIPARINE [Suspect]
     Indication: PULMONARY EMBOLISM
     Dosage: STRENGTH:12 500 IU/0.5 ML
     Route: 058
     Dates: start: 20090827, end: 20090921
  3. KARDEGIC [Suspect]
     Indication: CAROTID ARTERY STENOSIS
     Dosage: STRENGTH:75MG
     Route: 048
     Dates: start: 20090721, end: 20090921
  4. ANTIVITAMIN K [Suspect]
     Indication: PULMONARY EMBOLISM
     Dosage: WITHDRAWN AND RESTARTED.
  5. ANTIVITAMIN K [Suspect]
     Indication: DEEP VEIN THROMBOSIS
     Dosage: WITHDRAWN AND RESTARTED.

REACTIONS (7)
  - AGITATION [None]
  - FALL [None]
  - HAEMORRHAGIC ANAEMIA [None]
  - LUNG DISORDER [None]
  - MUSCLE HAEMORRHAGE [None]
  - PUBIS FRACTURE [None]
  - RENAL IMPAIRMENT [None]
